FAERS Safety Report 16709454 (Version 1)
Quarter: 2019Q3

REPORT INFORMATION
  Report Type: Spontaneous
  Country: US (occurrence: US)
  Receive Date: 20190701
  Receipt Date: 20190701
  Transmission Date: 20191004
  Serious: No
  Sender: FDA-Public Use
  Company Number: None

PATIENT
  Age: 39 Year
  Sex: Female

DRUGS (1)
  1. COPAXONE [Suspect]
     Active Substance: GLATIRAMER ACETATE
     Indication: MULTIPLE SCLEROSIS
     Dosage: OTHER
     Route: 058
     Dates: start: 201711, end: 201812

REACTIONS (3)
  - Therapy cessation [None]
  - Disease recurrence [None]
  - Insurance issue [None]

NARRATIVE: CASE EVENT DATE: 20190701
